FAERS Safety Report 16841863 (Version 2)
Quarter: 2019Q4

REPORT INFORMATION
  Report Type: Report from Study
  Country: CO (occurrence: CO)
  Receive Date: 20190923
  Receipt Date: 20191219
  Transmission Date: 20200122
  Serious: Yes (Death, Hospitalization, Other)
  Sender: FDA-Public Use
  Company Number: PHHY2019CO196806

PATIENT
  Age: 70 Year
  Sex: Female
  Weight: 59 kg

DRUGS (4)
  1. THYROXINE [Concomitant]
     Active Substance: LEVOTHYROXINE
     Indication: THYROID DISORDER
     Dosage: 25 UG, UNK
     Route: 065
  2. LANSOPRAZOLE. [Concomitant]
     Active Substance: LANSOPRAZOLE
     Indication: GASTRITIS
     Dosage: UNK
     Route: 065
  3. FEMARA [Suspect]
     Active Substance: LETROZOLE
     Indication: BREAST CANCER
     Dosage: 2.5 MG, QD
     Route: 048
     Dates: start: 20190816
  4. KISQALI [Suspect]
     Active Substance: RIBOCICLIB
     Indication: BREAST CANCER METASTATIC
     Dosage: 600 MG, QD
     Route: 048
     Dates: start: 20190816

REACTIONS (14)
  - Respiratory arrest [Fatal]
  - Lung disorder [Unknown]
  - General physical health deterioration [Unknown]
  - Blood creatinine increased [Unknown]
  - Oxygen saturation decreased [Fatal]
  - Dyspnoea [Fatal]
  - Malaise [Unknown]
  - Renal disorder [Unknown]
  - Leukopenia [Unknown]
  - Metastases to bone [Unknown]
  - Chest pain [Not Recovered/Not Resolved]
  - Vomiting [Unknown]
  - Respiratory failure [Fatal]
  - Breast mass [Unknown]

NARRATIVE: CASE EVENT DATE: 20190821
